FAERS Safety Report 14946088 (Version 1)
Quarter: 2018Q2

REPORT INFORMATION
  Report Type: Spontaneous
  Country: US (occurrence: US)
  Receive Date: 20180508
  Receipt Date: 20180508
  Transmission Date: 20180711
  Serious: Yes (Other)
  Sender: FDA-Public Use
  Company Number: None

PATIENT
  Age: 72 Year
  Sex: Male
  Weight: 67.5 kg

DRUGS (3)
  1. VITAMIN B12 [Suspect]
     Active Substance: CYANOCOBALAMIN
  2. CLOREXIL GLUCONATO DE CLORHEXIDINA AL 0.12% [Suspect]
     Active Substance: CHLORHEXIDINE GLUCONATE
     Indication: INFECTION PROPHYLAXIS
     Dosage: ?          QUANTITY:1 1;?
     Route: 048
     Dates: start: 20180504, end: 20180504
  3. VALTREX [Concomitant]
     Active Substance: VALACYCLOVIR HYDROCHLORIDE

REACTIONS (1)
  - Hypersensitivity [None]
